FAERS Safety Report 21568506 (Version 3)
Quarter: 2023Q1

REPORT INFORMATION
  Report Type: Spontaneous
  Country: CZ (occurrence: CZ)
  Receive Date: 20221108
  Receipt Date: 20230104
  Transmission Date: 20230418
  Serious: Yes (Other)
  Sender: FDA-Public Use
  Company Number: CZ-MYLANLABS-2021M1004174

PATIENT
  Age: 74 Year
  Sex: Female

DRUGS (8)
  1. CELECOXIB [Suspect]
     Active Substance: CELECOXIB
     Indication: Ankylosing spondylitis
     Dosage: FULL-DOSE
     Route: 065
     Dates: end: 2017
  2. CELECOXIB [Suspect]
     Active Substance: CELECOXIB
     Indication: Back pain
  3. IBUPROFEN [Suspect]
     Active Substance: IBUPROFEN
     Indication: Ankylosing spondylitis
     Dosage: 400 MILLIGRAM (ON DEMAND) (400 MG)
     Route: 065
     Dates: start: 1988
  4. IBUPROFEN [Suspect]
     Active Substance: IBUPROFEN
     Indication: Back pain
  5. DICLOFENAC [Suspect]
     Active Substance: DICLOFENAC
     Indication: Back pain
     Dosage: 75 MILLIGRAM (75 MG)
     Route: 065
     Dates: start: 1988, end: 2013
  6. NIMESULIDE [Suspect]
     Active Substance: NIMESULIDE
     Indication: Back pain
     Dosage: UNK, QD LONG-TERM USE OF NSAIDS
     Route: 065
     Dates: end: 2013
  7. NIMESULIDE [Suspect]
     Active Substance: NIMESULIDE
     Dosage: 75 MILLIGRAM
     Route: 065
     Dates: start: 1988, end: 2013
  8. SULFASALAZINE [Concomitant]
     Active Substance: SULFASALAZINE
     Indication: Ankylosing spondylitis
     Dosage: 2 GRAM, QD
     Route: 065
     Dates: start: 201410, end: 201504

REACTIONS (4)
  - Gastrointestinal haemorrhage [Unknown]
  - Intestinal haemorrhage [Unknown]
  - Contraindicated product administered [Unknown]
  - Functional gastrointestinal disorder [Unknown]

NARRATIVE: CASE EVENT DATE: 20130101
